FAERS Safety Report 14866689 (Version 1)
Quarter: 2018Q2

REPORT INFORMATION
  Report Type: Spontaneous
  Country: US (occurrence: US)
  Receive Date: 20180508
  Receipt Date: 20180508
  Transmission Date: 20180711
  Serious: No
  Sender: FDA-Public Use
  Company Number: US-ALKERMES INC.-ALK-2018-000582

PATIENT
  Age: 18 Year
  Sex: Female

DRUGS (1)
  1. VIVITROL [Suspect]
     Active Substance: NALTREXONE
     Indication: DRUG DEPENDENCE
     Dosage: 380 MG, QMO
     Route: 030
     Dates: start: 20180122

REACTIONS (8)
  - Ocular icterus [Unknown]
  - Vomiting [Not Recovered/Not Resolved]
  - Chest discomfort [Unknown]
  - Diarrhoea [Unknown]
  - Rash [Recovered/Resolved]
  - Wheezing [Unknown]
  - Swelling face [Unknown]
  - Drug abuse [Unknown]

NARRATIVE: CASE EVENT DATE: 20180122
